FAERS Safety Report 5655644-6 (Version None)
Quarter: 2008Q1

REPORT INFORMATION
  Report Type: 
  Country: None (occurrence: None)
  Receive Date: 20080307
  Receipt Date: 20080305
  Transmission Date: 20080703
  Serious: Yes (Life-Threatening, Hospitalization)
  Sender: FDA-Public Use
  Company Number: NL-WYE-H02946608

PATIENT
  Sex: Male
  Weight: 77 kg

DRUGS (6)
  1. GEMTUZUMAB OZOGAMICIN [Suspect]
     Indication: ACUTE MYELOID LEUKAEMIA
     Dosage: 5.7 MG-FREQUENCY NOT PROVIDED (CUMULATIVE DOSE GIVEN 29.3MG)
     Route: 065
     Dates: start: 20060826, end: 20070117
  2. MEROPENEM [Concomitant]
     Dosage: NOT PROVIDED
     Dates: start: 20070223, end: 20070312
  3. ETOPOSIDE [Suspect]
     Indication: ACUTE MYELOID LEUKAEMIA
     Dosage: DOSE AND FREQUENCY NOT PROVIDED
     Route: 042
     Dates: start: 20061025, end: 20070120
  4. CEFALORIDINE [Concomitant]
     Dosage: NOT PROVIDED
     Route: 065
     Dates: start: 20070127, end: 20070223
  5. CYTARABINE [Suspect]
     Indication: ACUTE MYELOID LEUKAEMIA
     Dosage: 950.0 MG-FREQUENCY NOT PROVIDED (CUMULATIVE DOSE GIVEN 1900.0 MG)
     Route: 042
     Dates: start: 20061025, end: 20070122
  6. IDARUBICIN HCL [Suspect]
     Indication: ACUTE MYELOID LEUKAEMIA
     Dosage: 45.0 MG-FREQUENCY NOT PROVIDED (CUMULATIVE DOSE GIVEN 45.0 MG)
     Route: 042
     Dates: start: 20070118, end: 20070122

REACTIONS (1)
  - RESPIRATORY FAILURE [None]
